FAERS Safety Report 11339991 (Version 1)
Quarter: 2015Q3

REPORT INFORMATION
  Report Type: Spontaneous
  Country: US (occurrence: None)
  Receive Date: 20150803
  Receipt Date: 20150803
  Transmission Date: 20151125
  Serious: No
  Sender: FDA-Public Use
  Company Number: None

PATIENT
  Age: 22 Year
  Sex: Male
  Weight: 60 kg

DRUGS (1)
  1. PROPOFOL. [Suspect]
     Active Substance: PROPOFOL
     Indication: SEDATION
     Dates: start: 20150717, end: 20150717

REACTIONS (4)
  - Agitation [None]
  - Hypertension [None]
  - Hallucination, visual [None]
  - Tachycardia [None]

NARRATIVE: CASE EVENT DATE: 20150717
